FAERS Safety Report 20227516 (Version 3)
Quarter: 2022Q1

REPORT INFORMATION
  Report Type: Spontaneous
  Country: US (occurrence: US)
  Receive Date: 20211224
  Receipt Date: 20220209
  Transmission Date: 20220423
  Serious: Yes (Other)
  Sender: FDA-Public Use
  Company Number: US-APOTEX-2021AP046948

PATIENT
  Sex: Female

DRUGS (2)
  1. DILTIAZEM [Suspect]
     Active Substance: DILTIAZEM
     Indication: Arrhythmia prophylaxis
     Dosage: 120 MILLIGRAM
     Route: 065
  2. DILTIAZEM [Suspect]
     Active Substance: DILTIAZEM
     Dosage: 240 MILLIGRAM
     Route: 065

REACTIONS (3)
  - Arrhythmia [Recovered/Resolved]
  - Product substitution issue [Unknown]
  - Drug ineffective [Unknown]

NARRATIVE: CASE EVENT DATE: 20210101
